FAERS Safety Report 6889745-1 (Version None)
Quarter: 2010Q3

REPORT INFORMATION
  Report Type: 
  Country: None (occurrence: None)
  Receive Date: 20100730
  Receipt Date: 20080421
  Transmission Date: 20110219
  Serious: No
  Sender: FDA-Public Use
  Company Number: US-PFIZER INC-2005157118

PATIENT
  Sex: Female
  Weight: 77.11 kg

DRUGS (6)
  1. LIPITOR [Suspect]
     Indication: BLOOD CHOLESTEROL
     Route: 065
     Dates: start: 20050701
  2. LEVOTHYROXINE SODIUM [Concomitant]
     Route: 065
  3. NEXIUM [Concomitant]
     Route: 065
  4. DOXEPIN HCL [Concomitant]
     Route: 065
  5. VITAMINS [Concomitant]
     Route: 065
  6. CALTRATE [Concomitant]
     Route: 065

REACTIONS (2)
  - HEART RATE IRREGULAR [None]
  - NASOPHARYNGITIS [None]
